FAERS Safety Report 5516949-2 (Version None)
Quarter: 2007Q4

REPORT INFORMATION
  Report Type: 
  Country: None (occurrence: None)
  Receive Date: 20071114
  Receipt Date: 20070614
  Transmission Date: 20080405
  Serious: No
  Sender: FDA-Public Use
  Company Number: A0655182A

PATIENT
  Age: 41 Year

DRUGS (1)
  1. COMMIT [Suspect]
     Dates: start: 20070524, end: 20070607

REACTIONS (3)
  - EATING DISORDER [None]
  - MALAISE [None]
  - NAUSEA [None]
